FAERS Safety Report 18504911 (Version 2)
Quarter: 2020Q4

REPORT INFORMATION
  Report Type: Spontaneous
  Country: FR (occurrence: FR)
  Receive Date: 20201115
  Receipt Date: 20201201
  Transmission Date: 20210114
  Serious: Yes (Life-Threatening, Hospitalization, Other)
  Sender: FDA-Public Use
  Company Number: FR-AUROBINDO-AUR-APL-2020-055711

PATIENT
  Age: 67 Year
  Sex: Female

DRUGS (5)
  1. IMMUNOGLOBULIN [Concomitant]
     Indication: POLYNEUROPATHY IN MALIGNANT DISEASE
     Dosage: 0.4 GRAM PER KILOGRAM, 4 CYCLE (0.4?G/ KG/DAY FOR 5?DAYS; RECEIVED FOUR CURES)
     Route: 042
  2. CARBOPLATIN. [Suspect]
     Active Substance: CARBOPLATIN
     Indication: SMALL CELL LUNG CANCER
     Dosage: UNK UNK, CYCLICAL, (4 CYCLE, EVERY 3 WEEKS)
     Route: 065
  3. CLONAZEPAM. [Concomitant]
     Active Substance: CLONAZEPAM
     Indication: POLYNEUROPATHY IN MALIGNANT DISEASE
     Dosage: UNK
     Route: 065
  4. ETOPOSIDE. [Suspect]
     Active Substance: ETOPOSIDE
     Indication: SMALL CELL LUNG CANCER
     Dosage: UNK UNK, CYCLICAL, (4 CYCLE, EVERY 3 WEEKS)
     Route: 065
  5. INSULIN [Concomitant]
     Active Substance: INSULIN NOS
     Indication: TYPE 2 DIABETES MELLITUS
     Dosage: UNK
     Route: 065

REACTIONS (5)
  - Cerebral haemorrhage [Unknown]
  - Neutropenia [Unknown]
  - Platelet count decreased [Unknown]
  - Hemiplegia [Unknown]
  - Urinary tract infection [Unknown]
